FAERS Safety Report 4954593-6 (Version None)
Quarter: 2006Q1

REPORT INFORMATION
  Report Type: 
  Country: None (occurrence: None)
  Receive Date: 20060327
  Receipt Date: 20060314
  Transmission Date: 20060701
  Serious: Yes (Hospitalization)
  Sender: FDA-Public Use
  Company Number: FR-AMGEN-UK172432

PATIENT
  Age: 59 Year
  Sex: Male

DRUGS (5)
  1. NEULASTA [Suspect]
     Indication: CHEMOTHERAPY
     Route: 058
     Dates: start: 20060111, end: 20060111
  2. GEMZAR [Suspect]
     Route: 042
     Dates: start: 20060112
  3. ZOPHREN [Concomitant]
  4. CISPLATIN [Concomitant]
     Route: 065
     Dates: start: 20060105
  5. SOLU-MEDROL [Concomitant]
     Route: 065
     Dates: start: 20060105

REACTIONS (5)
  - INAPPROPRIATE SCHEDULE OF DRUG ADMINISTRATION [None]
  - NEUTROPENIA [None]
  - PURPURA [None]
  - RASH MACULAR [None]
  - THROMBOCYTOPENIA [None]
